FAERS Safety Report 4743932-7 (Version None)
Quarter: 2005Q3

REPORT INFORMATION
  Report Type: 
  Country: None (occurrence: None)
  Receive Date: 20050812
  Receipt Date: 20050722
  Transmission Date: 20060218
  Serious: Yes (Hospitalization)
  Sender: FDA-Public Use
  Company Number: US-ROCHE-411560

PATIENT
  Age: 57 Year
  Sex: Male
  Weight: 60.8 kg

DRUGS (7)
  1. CELLCEPT [Suspect]
     Route: 065
  2. BACTRIM [Suspect]
     Indication: DRUG USE FOR UNKNOWN INDICATION
     Route: 065
  3. SIROLIMUS [Suspect]
     Route: 065
  4. PROCRIT [Suspect]
     Route: 058
     Dates: start: 20020227, end: 20030810
  5. PROCRIT [Suspect]
     Route: 058
     Dates: start: 20030811, end: 20050414
  6. FOLIC ACID [Concomitant]
     Indication: HYPOVITAMINOSIS
  7. PREDNISONE [Concomitant]

REACTIONS (7)
  - APLASIA PURE RED CELL [None]
  - DRUG INEFFECTIVE [None]
  - DRUG SPECIFIC ANTIBODY ABSENT [None]
  - FALSE NEGATIVE LABORATORY RESULT [None]
  - HYPOPLASTIC ANAEMIA [None]
  - MYELODYSPLASTIC SYNDROME [None]
  - RETICULOCYTE COUNT DECREASED [None]
